FAERS Safety Report 9495233 (Version 1)
Quarter: 2013Q3

REPORT INFORMATION
  Report Type: Report from Study
  Country: GB (occurrence: GB)
  Receive Date: 20130903
  Receipt Date: 20130903
  Transmission Date: 20140515
  Serious: Yes (Hospitalization)
  Sender: FDA-Public Use
  Company Number: GB-ROCHE-1268971

PATIENT
  Sex: Female

DRUGS (2)
  1. RITUXIMAB [Suspect]
     Indication: RHEUMATOID ARTHRITIS
     Route: 065
     Dates: start: 20110708
  2. HYDROXYCHLOROQUINE [Concomitant]

REACTIONS (3)
  - Transient ischaemic attack [Unknown]
  - Headache [Unknown]
  - Hypertension [Unknown]
